FAERS Safety Report 9239868 (Version 2)
Quarter: 2013Q2

REPORT INFORMATION
  Report Type: Report from Study
  Country: NL (occurrence: NL)
  Receive Date: 20130418
  Receipt Date: 20130424
  Transmission Date: 20140414
  Serious: Yes (Hospitalization)
  Sender: FDA-Public Use
  Company Number: NL-ASTRAZENECA-2013SE24044

PATIENT
  Age: 64 Year
  Sex: Female
  Weight: 92 kg

DRUGS (6)
  1. ARIMIDEX [Suspect]
     Indication: BREAST CANCER
     Route: 048
     Dates: start: 20090417
  2. ATORVASTATINE [Concomitant]
     Indication: HYPERCHOLESTEROLAEMIA
     Route: 048
  3. DICLOFENAC [Concomitant]
     Indication: ARTHRALGIA
     Route: 048
     Dates: start: 20061009
  4. PARACETAMOL [Concomitant]
     Indication: ARTHRALGIA
     Route: 048
     Dates: start: 20090710
  5. PROMETHAZINE [Concomitant]
     Indication: MIGRAINE
     Route: 048
  6. ESOMEPRAZOL [Concomitant]
     Route: 048
     Dates: start: 20061009

REACTIONS (1)
  - Osteoarthritis [Recovered/Resolved]
